FAERS Safety Report 24030612 (Version 1)
Quarter: 2024Q2

REPORT INFORMATION
  Report Type: Spontaneous
  Country: US (occurrence: US)
  Receive Date: 20240628
  Receipt Date: 20240628
  Transmission Date: 20240716
  Serious: Yes (Hospitalization)
  Sender: FDA-Public Use
  Company Number: US-JNJFOC-20240652011

PATIENT
  Age: 39 Year
  Sex: Female

DRUGS (9)
  1. TYLENOL EXTRA STRENGTH [Suspect]
     Active Substance: ACETAMINOPHEN
     Indication: Oropharyngeal pain
     Dosage: ONE TO TWO TABLETS
     Route: 048
  2. TYLENOL EXTRA STRENGTH [Suspect]
     Active Substance: ACETAMINOPHEN
     Indication: Cough
  3. VICKS NYQUIL [Suspect]
     Active Substance: ACETAMINOPHEN\DEXTROMETHORPHAN HYDROBROMIDE\DOXYLAMINE SUCCINATE
     Indication: Oropharyngeal pain
     Dosage: 2 OUNCE
     Route: 048
  4. VICKS NYQUIL [Suspect]
     Active Substance: ACETAMINOPHEN\DEXTROMETHORPHAN HYDROBROMIDE\DOXYLAMINE SUCCINATE
     Indication: Cough
  5. AMOXICILLIN [Concomitant]
     Active Substance: AMOXICILLIN
     Indication: Viral infection
     Route: 065
  6. GUAIFENESIN [Concomitant]
     Active Substance: GUAIFENESIN
     Indication: Viral infection
     Route: 065
  7. ATROPA BELLADONNA\HOMEOPATHICS [Concomitant]
     Active Substance: ATROPA BELLADONNA\HOMEOPATHICS
     Indication: Viral infection
     Route: 065
  8. PHENOBARBITAL [Concomitant]
     Active Substance: PHENOBARBITAL
     Indication: Viral infection
     Route: 065
  9. PSEUDOEPHEDRINE HYDROCHLORIDE [Concomitant]
     Active Substance: PSEUDOEPHEDRINE HYDROCHLORIDE
     Indication: Viral infection
     Route: 065

REACTIONS (31)
  - Diarrhoea [Unknown]
  - Abdominal pain [Unknown]
  - Urine output decreased [Recovered/Resolved]
  - Blood pressure increased [Unknown]
  - Heart rate increased [Unknown]
  - Body temperature increased [Unknown]
  - Periorbital oedema [Unknown]
  - Ecchymosis [Unknown]
  - Ocular icterus [Unknown]
  - Blood urea increased [Recovering/Resolving]
  - Blood creatinine increased [Recovering/Resolving]
  - Activated partial thromboplastin time shortened [Unknown]
  - Specific gravity urine decreased [Unknown]
  - Bilirubin urine present [Unknown]
  - Red blood cells urine positive [Unknown]
  - Urine sodium increased [Unknown]
  - Blood osmolarity decreased [Unknown]
  - Disseminated intravascular coagulation [Recovered/Resolved]
  - Hepatomegaly [Unknown]
  - Liver tenderness [Unknown]
  - Prothrombin time prolonged [Unknown]
  - Alanine aminotransferase increased [Recovering/Resolving]
  - Aspartate aminotransferase increased [Recovering/Resolving]
  - Blood alkaline phosphatase increased [Recovering/Resolving]
  - Blood bilirubin increased [Recovering/Resolving]
  - Bilirubin conjugated increased [Recovering/Resolving]
  - Product use in unapproved indication [Unknown]
  - Product administration error [Unknown]
  - Overdose [Unknown]
  - Vomiting [Unknown]
  - Nausea [Unknown]
